FAERS Safety Report 16662039 (Version 1)
Quarter: 2019Q3

REPORT INFORMATION
  Report Type: Report from Study
  Country: US (occurrence: US)
  Receive Date: 20190802
  Receipt Date: 20190802
  Transmission Date: 20191004
  Serious: No
  Sender: FDA-Public Use
  Company Number: US-EXELIXIS-CABO-19019098

PATIENT
  Age: 54 Year
  Sex: Male

DRUGS (1)
  1. CABOMETYX [Suspect]
     Active Substance: CABOZANTINIB S-MALATE
     Indication: RENAL CANCER
     Dosage: 60 MG, QD (AM, WITHOUT FOOD)
     Dates: start: 20190212

REACTIONS (7)
  - Dysphonia [Unknown]
  - Throat irritation [Unknown]
  - Dry skin [Unknown]
  - Fatigue [Not Recovered/Not Resolved]
  - Stomatitis [Unknown]
  - Pain in extremity [Unknown]
  - Glossitis [Unknown]

NARRATIVE: CASE EVENT DATE: 201902
